FAERS Safety Report 25296485 (Version 4)
Quarter: 2025Q4

REPORT INFORMATION
  Report Type: Spontaneous
  Country: US (occurrence: US)
  Receive Date: 20250511
  Receipt Date: 20251117
  Transmission Date: 20260118
  Serious: No
  Sender: SANOFI AVENTIS
  Company Number: US-SA-2025SA130809

PATIENT
  Age: 65 Year
  Sex: Female

DRUGS (7)
  1. DUPIXENT [Suspect]
     Active Substance: DUPILUMAB
     Indication: Eczema
     Dosage: 600 MG 1X
     Route: 058
     Dates: start: 20250409, end: 20250409
  2. DUPIXENT [Suspect]
     Active Substance: DUPILUMAB
     Indication: Dermatitis atopic
     Dosage: 300 MG, QOW
     Route: 058
     Dates: start: 202504, end: 20250513
  3. DUPIXENT [Suspect]
     Active Substance: DUPILUMAB
     Indication: Dermatitis allergic
  4. HYDROCORTISONE [Concomitant]
     Active Substance: HYDROCORTISONE
     Dosage: UNK UNK, BID
     Route: 061
     Dates: start: 20250616
  5. COZAAR [Concomitant]
     Active Substance: LOSARTAN POTASSIUM
     Dosage: TAKE 1.5 MG TABLET (75 MG) ONE TIME DAILY
     Route: 048
     Dates: start: 20230717
  6. ESTRACE [Concomitant]
     Active Substance: ESTRADIOL
     Dosage: UNK UNK, QW
     Route: 067
     Dates: start: 20230913
  7. ZYRTEC [Concomitant]
     Active Substance: CETIRIZINE HYDROCHLORIDE
     Indication: Hypersensitivity
     Dosage: UNK

REACTIONS (14)
  - Fatigue [Unknown]
  - Asthenia [Unknown]
  - Pyrexia [Unknown]
  - Cough [Unknown]
  - Myalgia [Unknown]
  - Arthralgia [Recovered/Resolved]
  - Eczema [Recovered/Resolved]
  - Dry skin [Recovered/Resolved]
  - Rash [Recovered/Resolved]
  - Skin tightness [Recovered/Resolved]
  - Pruritus [Recovered/Resolved]
  - Injection site rash [Unknown]
  - Injection site swelling [Recovered/Resolved]
  - Injection site erythema [Recovered/Resolved]

NARRATIVE: CASE EVENT DATE: 20250101
